FAERS Safety Report 4393967-1 (Version None)
Quarter: 2004Q3

REPORT INFORMATION
  Report Type: 
  Country: None (occurrence: None)
  Receive Date: 20040701
  Receipt Date: 20040623
  Transmission Date: 20050211
  Serious: Yes (Death)
  Sender: FDA-Public Use
  Company Number: 2004AP03278

PATIENT
  Age: 24 Year
  Sex: Female

DRUGS (12)
  1. SEROQUEL [Suspect]
     Indication: AGITATION
     Dosage: 200 MG DAILY PO
     Route: 048
  2. SEROQUEL [Suspect]
     Indication: BIPOLAR DISORDER
     Dosage: 200 MG DAILY PO
     Route: 048
  3. SEROQUEL [Suspect]
     Indication: SCHIZOAFFECTIVE DISORDER
     Dosage: 200 MG DAILY PO
     Route: 048
  4. SEROQUEL [Suspect]
     Indication: AGITATION
     Dosage: 25 TO 50 MG AS REQUIRED
  5. SEROQUEL [Suspect]
     Indication: BIPOLAR DISORDER
     Dosage: 25 TO 50 MG AS REQUIRED
  6. SEROQUEL [Suspect]
     Indication: SCHIZOAFFECTIVE DISORDER
     Dosage: 25 TO 50 MG AS REQUIRED
  7. ARIPIPRAZOLE [Concomitant]
  8. FLUVOXAMINE [Concomitant]
  9. TOPIRMATE [Concomitant]
  10. THYROXINE [Concomitant]
  11. SERETIDE   ALLEN + HANBURYS LTD [Concomitant]
  12. VENTOLIN [Concomitant]

REACTIONS (3)
  - AGITATION [None]
  - ANTIDEPRESSANT DRUG LEVEL INCREASED [None]
  - COMPLETED SUICIDE [None]
